FAERS Safety Report 4487925-6 (Version None)
Quarter: 2004Q4

REPORT INFORMATION
  Report Type: 
  Country: None (occurrence: None)
  Receive Date: 20041022
  Receipt Date: 20041019
  Transmission Date: 20050328
  Serious: Yes (Other)
  Sender: FDA-Public Use
  Company Number: THQ2004A00901

PATIENT
  Age: 71 Year
  Sex: Male

DRUGS (6)
  1. LANSOPRAZOLE [Suspect]
     Dosage: 30 MG
  2. CARDURA XL (DOXAZOSIN MESILATE) [Concomitant]
  3. PLAVIX [Concomitant]
  4. LIPITOR [Concomitant]
  5. COVERSYL (PERINDOPRIL) [Concomitant]
  6. ALLOPURINOL [Concomitant]

REACTIONS (5)
  - AORTIC ANEURYSM [None]
  - BREAST SWELLING [None]
  - DIZZINESS [None]
  - DYSPNOEA [None]
  - FATIGUE [None]
